FAERS Safety Report 15320094 (Version 1)
Quarter: 2018Q3

REPORT INFORMATION
  Report Type: Spontaneous
  Country: US (occurrence: US)
  Receive Date: 20180827
  Receipt Date: 20180827
  Transmission Date: 20181010
  Serious: No
  Sender: FDA-Public Use
  Company Number: US-PFIZER INC-2018340802

PATIENT
  Age: 60 Year
  Sex: Female
  Weight: 83.46 kg

DRUGS (18)
  1. LYRICA [Suspect]
     Active Substance: PREGABALIN
     Indication: NERVE INJURY
  2. TURMERIC [Concomitant]
     Active Substance: HERBALS\TURMERIC
     Indication: INFLAMMATION
  3. SIMVASTATIN. [Concomitant]
     Active Substance: SIMVASTATIN
     Indication: BLOOD CHOLESTEROL ABNORMAL
     Dosage: 20 MG, SINGLE
  4. VYVANSE [Concomitant]
     Active Substance: LISDEXAMFETAMINE DIMESYLATE
     Indication: ATTENTION DEFICIT/HYPERACTIVITY DISORDER
     Dosage: 70 MG, DAILY
  5. LYRICA [Suspect]
     Active Substance: PREGABALIN
     Indication: FIBROMYALGIA
     Dosage: 50 MG, 2X/DAY
     Dates: start: 201807
  6. LYRICA [Suspect]
     Active Substance: PREGABALIN
     Indication: INTERVERTEBRAL DISC PROTRUSION
  7. VITAMIN D [Concomitant]
     Active Substance: CHOLECALCIFEROL
     Indication: PAIN
  8. LEVOTHROID [Concomitant]
     Active Substance: LEVOTHYROXINE SODIUM
     Indication: THYROID DISORDER
     Dosage: 88 MG, 1X/DAY
  9. TRAZODONE [Concomitant]
     Active Substance: TRAZODONE HYDROCHLORIDE
     Indication: INSOMNIA
     Dosage: 75 MG, 1X/DAY (AT NIGHT)
  10. LYRICA [Suspect]
     Active Substance: PREGABALIN
     Indication: LUMBAR RADICULOPATHY
  11. LYRICA [Suspect]
     Active Substance: PREGABALIN
     Indication: DYSPLASTIC NAEVUS
  12. VITAMIN D [Concomitant]
     Active Substance: CHOLECALCIFEROL
     Indication: VITAMIN D DECREASED
     Dosage: 1000 MG, 1X/DAY
  13. DULOXETINE. [Concomitant]
     Active Substance: DULOXETINE
     Indication: DEPRESSION
     Dosage: 90 MG, 1X/DAY
  14. PANTOPRAZOLE [Concomitant]
     Active Substance: PANTOPRAZOLE
     Indication: GASTROOESOPHAGEAL REFLUX DISEASE
     Dosage: 40 MG, 1X/DAY
  15. TURMERIC [Concomitant]
     Active Substance: HERBALS\TURMERIC
     Indication: MYALGIA
     Dosage: 500 MG, 3X/DAY
  16. TURMERIC [Concomitant]
     Active Substance: HERBALS\TURMERIC
     Indication: ANTIOXIDANT THERAPY
  17. FEXOFENADINE [Concomitant]
     Active Substance: FEXOFENADINE\FEXOFENADINE HYDROCHLORIDE
     Indication: HYPERSENSITIVITY
     Dosage: 180 MG, 1X/DAY (AS NEEDED)
  18. MAGNESIUM AMINO ACID CHELATE [Concomitant]
     Active Substance: MAGNESIUM
     Dosage: 500 MG, 2X/DAY

REACTIONS (1)
  - Drug effect incomplete [Unknown]
